FAERS Safety Report 6824562-X (Version None)
Quarter: 2010Q3

REPORT INFORMATION
  Report Type: 
  Country: None (occurrence: None)
  Receive Date: 20100708
  Receipt Date: 20061103
  Transmission Date: 20110219
  Serious: No
  Sender: FDA-Public Use
  Company Number: US-PFIZER INC-2006138751

PATIENT
  Sex: Male
  Weight: 78.02 kg

DRUGS (3)
  1. CHANTIX [Suspect]
     Indication: SMOKING CESSATION THERAPY
     Dates: start: 20061029
  2. SIMVASTATIN [Concomitant]
     Indication: BLOOD CHOLESTEROL INCREASED
  3. THYROID TAB [Concomitant]
     Indication: THYROID DISORDER

REACTIONS (2)
  - ABDOMINAL PAIN UPPER [None]
  - HUNGER [None]
